FAERS Safety Report 8050712-6 (Version None)
Quarter: 2012Q1

REPORT INFORMATION
  Report Type: 
  Country: None (occurrence: None)
  Receive Date: 20120117
  Receipt Date: 20120117
  Transmission Date: 20120608
  Serious: Yes (Hospitalization, Disabling)
  Sender: FDA-Public Use
  Company Number: None

PATIENT
  Sex: Female
  Weight: 62.595 kg

DRUGS (1)
  1. FOSAMAX [Suspect]
     Indication: OSTEOPENIA

REACTIONS (2)
  - COMMINUTED FRACTURE [None]
  - LOWER LIMB FRACTURE [None]
